FAERS Safety Report 8342304-6 (Version None)
Quarter: 2012Q2

REPORT INFORMATION
  Report Type: 
  Country: None (occurrence: None)
  Receive Date: 20120507
  Receipt Date: 20120405
  Transmission Date: 20120825
  Serious: Yes (Life-Threatening)
  Sender: FDA-Public Use
  Company Number: KR-ALLERGAN-1204165US

PATIENT
  Age: 61 Year
  Sex: Male

DRUGS (2)
  1. BIMATOPROST AND TIMOLOL MALEATE [Suspect]
     Indication: OPEN ANGLE GLAUCOMA
     Dosage: 1 GTT, QD
     Route: 061
     Dates: start: 20111019
  2. PROMAG [Concomitant]
     Indication: EPILEPSY
     Dosage: 500 MG, QD
     Route: 048

REACTIONS (3)
  - LUNG NEOPLASM MALIGNANT [None]
  - METASTASES TO CENTRAL NERVOUS SYSTEM [None]
  - SPINAL CORD COMPRESSION [None]
